FAERS Safety Report 19380506 (Version 1)
Quarter: 2021Q2

REPORT INFORMATION
  Report Type: Spontaneous
  Country: US (occurrence: US)
  Receive Date: 20210604
  Receipt Date: 20210604
  Transmission Date: 20210717
  Serious: No
  Sender: FDA-Public Use
  Company Number: None

PATIENT
  Age: 52 Year
  Sex: Female
  Weight: 1002 kg

DRUGS (11)
  1. GABAPENTIN. [Concomitant]
     Active Substance: GABAPENTIN
  2. METHOTREXATE SODIUM. [Concomitant]
     Active Substance: METHOTREXATE SODIUM
  3. FASLODEX [Concomitant]
     Active Substance: FULVESTRANT
  4. LORAZEPAM. [Concomitant]
     Active Substance: LORAZEPAM
  5. ELIQUIS [Concomitant]
     Active Substance: APIXABAN
  6. FOLIC ACID. [Concomitant]
     Active Substance: FOLIC ACID
  7. HYDROCHLOROTHIAZIDE. [Concomitant]
     Active Substance: HYDROCHLOROTHIAZIDE
  8. LEUCOVORIN CALCIUM. [Concomitant]
     Active Substance: LEUCOVORIN CALCIUM
  9. VALSARTAN. [Concomitant]
     Active Substance: VALSARTAN
  10. IBRANCE [Suspect]
     Active Substance: PALBOCICLIB
     Indication: BREAST CANCER FEMALE
     Route: 048
     Dates: start: 20200522
  11. VENLAFAXINE HCI ER [Concomitant]

REACTIONS (1)
  - Breast cancer [None]
